FAERS Safety Report 6329268-1 (Version None)
Quarter: 2009Q3

REPORT INFORMATION
  Report Type: 
  Country: None (occurrence: None)
  Receive Date: 20090818
  Receipt Date: 20090601
  Transmission Date: 20100115
  Serious: No
  Sender: FDA-Public Use
  Company Number: WAES 0906USA00262

PATIENT
  Age: 48 Year
  Sex: Female

DRUGS (17)
  1. JANUVIA [Suspect]
     Indication: DIABETES MELLITUS
     Dosage: 100 MG/DAILY/PO
     Route: 048
     Dates: start: 20090406, end: 20090504
  2. AMBIEN [Concomitant]
  3. COREG [Concomitant]
  4. DIOVAN [Concomitant]
  5. FLEXERIL [Concomitant]
  6. GLUCOPHAGE [Concomitant]
  7. HUMIRA [Concomitant]
  8. LEVEMIR [Concomitant]
  9. MOBIC [Concomitant]
  10. NEXIUM [Concomitant]
  11. PLAQUENIL [Concomitant]
  12. SINGULAIR [Concomitant]
  13. SKELAXIN [Concomitant]
  14. SYNTHROID [Concomitant]
  15. ZOCOR [Concomitant]
  16. FOLIC ACID [Concomitant]
  17. METHOTREXATE [Concomitant]

REACTIONS (2)
  - FLUID RETENTION [None]
  - OEDEMA PERIPHERAL [None]
